FAERS Safety Report 7625584-1 (Version None)
Quarter: 2011Q3

REPORT INFORMATION
  Report Type: 
  Country: None (occurrence: None)
  Receive Date: 20110701
  Receipt Date: 20100607
  Transmission Date: 20111222
  Serious: Yes (Other)
  Sender: FDA-Public Use
  Company Number: 7007276

PATIENT
  Age: 23 Year
  Sex: Male
  Weight: 104 kg

DRUGS (3)
  1. FIORICET [Concomitant]
  2. REBIF [Suspect]
     Indication: MULTIPLE SCLEROSIS
     Dosage: 44 MCG, 3 IN 1 WK, SUBCUTANEOUS
     Route: 058
     Dates: start: 20090903
  3. IBUPROFEN [Concomitant]

REACTIONS (2)
  - MULTIPLE SCLEROSIS RELAPSE [None]
  - STRESS [None]
